FAERS Safety Report 9447890 (Version 1)
Quarter: 2013Q3

REPORT INFORMATION
  Report Type: Spontaneous
  Country: GB (occurrence: None)
  Receive Date: 20130806
  Receipt Date: 20130806
  Transmission Date: 20140515
  Serious: Yes (Hospitalization)
  Sender: FDA-Public Use
  Company Number: GB-DEXPHRAM-20130461

PATIENT
  Age: 71 Year
  Sex: Female

DRUGS (9)
  1. OMEPRAZOLE (OMEPRAZOLE) [Suspect]
  2. ASPIRIN [Concomitant]
  3. BISOPROLOL [Concomitant]
  4. DOSULEPIN [Concomitant]
  5. DOXAZOCIN [Concomitant]
  6. FLURAZEPAM [Concomitant]
  7. PRAVASTATIN [Concomitant]
  8. RAMIPRIL [Concomitant]
  9. ROPINIROLE [Concomitant]

REACTIONS (5)
  - Hypocalcaemia [None]
  - Hypomagnesaemia [None]
  - Hypokalaemia [None]
  - Vitamin D deficiency [None]
  - Paraesthesia [None]
